FAERS Safety Report 19580519 (Version 1)
Quarter: 2021Q3

REPORT INFORMATION
  Report Type: Spontaneous
  Country: US (occurrence: US)
  Receive Date: 20210720
  Receipt Date: 20210720
  Transmission Date: 20211014
  Serious: Yes (Death, Hospitalization)
  Sender: FDA-Public Use
  Company Number: US-CADILA HEALTHCARE LIMITED-US-ZYDUS-067846

PATIENT

DRUGS (3)
  1. AMLODIPINE [Suspect]
     Active Substance: AMLODIPINE BESYLATE
     Indication: COMPLETED SUICIDE
     Dosage: UNK
     Route: 048
  2. FENOFIBRATE. [Suspect]
     Active Substance: FENOFIBRATE
     Indication: COMPLETED SUICIDE
     Dosage: UNK
     Route: 048
  3. COLCHICINE. [Suspect]
     Active Substance: COLCHICINE
     Indication: COMPLETED SUICIDE
     Dosage: UNK
     Route: 048

REACTIONS (11)
  - Lethargy [Unknown]
  - Aspiration [Unknown]
  - Toxicity to various agents [None]
  - Vomiting [Unknown]
  - Suicide attempt [Fatal]
  - Hepatic function abnormal [Unknown]
  - Cardiac arrest [Unknown]
  - Hypotension [Recovering/Resolving]
  - Intentional product misuse [Unknown]
  - Renal impairment [Unknown]
  - Somnolence [Recovering/Resolving]
